FAERS Safety Report 13083934 (Version 4)
Quarter: 2017Q1

REPORT INFORMATION
  Report Type: Spontaneous
  Country: US (occurrence: US)
  Receive Date: 20170104
  Receipt Date: 20170303
  Transmission Date: 20170428
  Serious: No
  Sender: FDA-Public Use
  Company Number: US-INCYTE CORPORATION-2016IN008254

PATIENT
  Age: 50 Year
  Sex: Male
  Weight: 82.86 kg

DRUGS (4)
  1. ANAGRELIDE [Concomitant]
     Active Substance: ANAGRELIDE
     Indication: PRODUCT USED FOR UNKNOWN INDICATION
     Dosage: 5 MG, UNK
  2. ANAGRELIDE [Concomitant]
     Active Substance: ANAGRELIDE
     Dosage: 1 MG, UNK
     Dates: start: 20170113
  3. JAKAFI [Suspect]
     Active Substance: RUXOLITINIB
     Indication: MYELOFIBROSIS
     Dosage: 20 MG, BID
     Route: 048
     Dates: start: 20161022
  4. ANAGRELIDE [Concomitant]
     Active Substance: ANAGRELIDE
     Dosage: 2 MG, QD
     Dates: start: 20161031

REACTIONS (13)
  - Platelet count increased [Recovering/Resolving]
  - Nausea [Unknown]
  - Disturbance in attention [Unknown]
  - Nail discolouration [Unknown]
  - Walking aid user [Unknown]
  - Alopecia [Unknown]
  - Platelet count decreased [Unknown]
  - Headache [Unknown]
  - Dizziness [Unknown]
  - Constipation [Unknown]
  - Pain [Unknown]
  - Fatigue [Unknown]
  - Nervousness [Unknown]

NARRATIVE: CASE EVENT DATE: 20161110
